FAERS Safety Report 16672542 (Version 1)
Quarter: 2019Q3

REPORT INFORMATION
  Report Type: Spontaneous
  Country: US (occurrence: US)
  Receive Date: 20190620
  Receipt Date: 20190620
  Transmission Date: 20191004
  Serious: No
  Sender: FDA-Public Use
  Company Number: None

PATIENT
  Age: 55 Year
  Sex: Male

DRUGS (1)
  1. DALFAMPRIDINE 10MG ER TAB [Suspect]
     Active Substance: DALFAMPRIDINE
     Route: 048

REACTIONS (6)
  - Tachycardia [None]
  - Carpal tunnel syndrome [None]
  - Weight decreased [None]
  - Rectal discharge [None]
  - Condition aggravated [None]
  - Anorectal discomfort [None]

NARRATIVE: CASE EVENT DATE: 20190620
